FAERS Safety Report 10993820 (Version 1)
Quarter: 2015Q2

REPORT INFORMATION
  Report Type: Spontaneous
  Country: US (occurrence: None)
  Receive Date: 20150406
  Receipt Date: 20150406
  Transmission Date: 20150821
  Serious: Yes (Hospitalization)
  Sender: FDA-Public Use
  Company Number: None

PATIENT
  Age: 75 Year
  Sex: Female
  Weight: 68.95 kg

DRUGS (10)
  1. DILAUDID [Concomitant]
     Active Substance: HYDROMORPHONE HYDROCHLORIDE
  2. FENTANYL. [Concomitant]
     Active Substance: FENTANYL
  3. OXALIPLATIN. [Suspect]
     Active Substance: OXALIPLATIN
     Indication: PANCREATIC CARCINOMA
     Dosage: 155 MG, Q2WEEKS
     Route: 042
     Dates: start: 20150310
  4. 5-FU [Suspect]
     Active Substance: FLUOROURACIL
     Indication: PANCREATIC CARCINOMA
     Dosage: 4320 MG, Q2WEEKS
     Route: 042
     Dates: start: 20150310
  5. COMPAZINE [Concomitant]
     Active Substance: PROCHLORPERAZINE MALEATE
  6. OMEPRAZOLE. [Concomitant]
     Active Substance: OMEPRAZOLE
  7. ABRAXANE [Concomitant]
     Active Substance: PACLITAXEL
     Indication: PANCREATIC CARCINOMA
     Dosage: 270 MG, Q2WEEKS
     Route: 042
     Dates: start: 20150310
  8. LEUCOVORIN [Suspect]
     Active Substance: LEUCOVORIN
     Indication: PANCREATIC CARCINOMA
     Dosage: 720 MG, Q2WEEKS
     Route: 042
     Dates: start: 20150310
  9. NOVOLOG [Concomitant]
     Active Substance: INSULIN ASPART
  10. BENICAR [Concomitant]
     Active Substance: OLMESARTAN MEDOXOMIL

REACTIONS (8)
  - Diarrhoea [None]
  - Oral candidiasis [None]
  - Nausea [None]
  - Vomiting [None]
  - Failure to thrive [None]
  - Mucosal infection [None]
  - Malnutrition [None]
  - Decreased appetite [None]

NARRATIVE: CASE EVENT DATE: 20150320
